FAERS Safety Report 25913124 (Version 3)
Quarter: 2025Q4

REPORT INFORMATION
  Report Type: Spontaneous
  Country: US (occurrence: US)
  Receive Date: 20251013
  Receipt Date: 20251217
  Transmission Date: 20260117
  Serious: Yes (Hospitalization, Other)
  Sender: HIKMA
  Company Number: US-HIKMA PHARMACEUTICALS USA INC.-US-H14001-25-10888

PATIENT
  Age: 62 Year
  Sex: Female

DRUGS (3)
  1. PREDNISONE [Suspect]
     Active Substance: PREDNISONE
     Dosage: 10 MILLIGRAM, QD
     Route: 048
     Dates: start: 20250822
  2. PREDNISONE [Suspect]
     Active Substance: PREDNISONE
     Indication: Colitis
     Dosage: 60 MILLIGRAM
     Route: 048
     Dates: start: 20250527
  3. SIGVOTATUG VEDOTIN [Suspect]
     Active Substance: SIGVOTATUG VEDOTIN
     Indication: Non-small cell lung cancer
     Dosage: 1.8 MG/KG (EVERY 2 WEEKS (Q2W))
     Route: 042
     Dates: start: 20250115, end: 20250910

REACTIONS (2)
  - Pyelonephritis [Recovered/Resolved]
  - Condition aggravated [Unknown]

NARRATIVE: CASE EVENT DATE: 20250917
